FAERS Safety Report 6784652-7 (Version None)
Quarter: 2010Q2

REPORT INFORMATION
  Report Type: 
  Country: None (occurrence: None)
  Receive Date: 20100622
  Receipt Date: 20100616
  Transmission Date: 20101027
  Serious: Yes (Hospitalization)
  Sender: FDA-Public Use
  Company Number: B0660835A

PATIENT
  Sex: Female

DRUGS (6)
  1. RANITIDINE HCL [Suspect]
     Indication: PREMEDICATION
     Route: 042
     Dates: start: 20100525, end: 20100525
  2. PACLITAXEL [Suspect]
     Indication: OVARIAN CANCER
     Dosage: 335MG PER DAY
     Route: 042
     Dates: start: 20100525, end: 20100525
  3. ZOPHREN [Concomitant]
     Indication: PREMEDICATION
     Dosage: 8MG PER DAY
     Route: 042
     Dates: start: 20100525, end: 20100525
  4. POLARAMINE [Concomitant]
     Indication: PREMEDICATION
     Dosage: 5MG PER DAY
     Route: 042
     Dates: start: 20100525, end: 20100525
  5. CARBOPLATIN [Concomitant]
     Indication: OVARIAN CANCER
     Dosage: 790MG PER DAY
     Route: 042
     Dates: start: 20100525, end: 20100525
  6. METHYLPREDNISOLONE [Concomitant]
     Indication: PREMEDICATION
     Dosage: 120MG PER DAY
     Route: 042

REACTIONS (4)
  - FATIGUE [None]
  - HYPERTENSION [None]
  - PRURITUS [None]
  - TREMOR [None]
